FAERS Safety Report 4476992-1 (Version None)
Quarter: 2004Q4

REPORT INFORMATION
  Report Type: 
  Country: None (occurrence: None)
  Receive Date: 20041018
  Receipt Date: 20041005
  Transmission Date: 20050328
  Serious: Yes (Hospitalization, Other)
  Sender: FDA-Public Use
  Company Number: US-ABBOTT-04P-163-0276237-00

PATIENT
  Sex: Female
  Weight: 104.4 kg

DRUGS (8)
  1. HUMIRA [Suspect]
     Indication: RHEUMATOID ARTHRITIS
     Route: 058
     Dates: start: 20030401, end: 20040801
  2. CETIRIZINE HCL [Concomitant]
     Indication: HYPERSENSITIVITY
  3. VERAPAMIL [Concomitant]
     Indication: HYPERTENSION
  4. FLUOXETINE HYDROCHLORIDE [Concomitant]
     Indication: NERVOUSNESS
  5. PREDNISONE [Concomitant]
     Indication: RHEUMATOID ARTHRITIS
  6. PREDNISONE [Concomitant]
     Indication: RESPIRATORY DISORDER
  7. METHOTREXATE SODIUM [Concomitant]
     Indication: RHEUMATOID ARTHRITIS
     Dates: end: 20040801
  8. SULFASALAZINE [Concomitant]
     Indication: RHEUMATOID ARTHRITIS

REACTIONS (4)
  - CARDIOMEGALY [None]
  - DYSPNOEA [None]
  - MYOCARDIAL INFARCTION [None]
  - VENTRICULAR DYSFUNCTION [None]
